FAERS Safety Report 9609268 (Version 2)
Quarter: 2013Q4

REPORT INFORMATION
  Report Type: Spontaneous
  Country: US (occurrence: US)
  Receive Date: 20131009
  Receipt Date: 20131009
  Transmission Date: 20140711
  Serious: No
  Sender: FDA-Public Use
  Company Number: US-PURDUE-USA-2012-0094396

PATIENT
  Age: 45 Year
  Sex: Female
  Weight: 104.31 kg

DRUGS (12)
  1. BUTRANS [Suspect]
     Indication: BACK PAIN
     Dosage: 20 MCG, WEEKLY
     Route: 062
     Dates: start: 20120313, end: 20120711
  2. SEROQUEL [Concomitant]
     Indication: SLEEP DISORDER
     Dosage: 400 MG, HS
     Route: 048
  3. PERCOCET                           /00867901/ [Concomitant]
     Indication: PAIN
     Dosage: 1 TABLET, Q8H
     Route: 048
  4. DALMANE [Concomitant]
     Indication: SLEEP DISORDER
     Dosage: 30 MG, HS
     Route: 048
  5. ZANAFLEX [Concomitant]
     Indication: MUSCLE RELAXANT THERAPY
     Dosage: 4 MG, TID
     Route: 048
  6. SYNTHROID [Concomitant]
     Indication: THYROID CANCER
     Dosage: 0.175 MCG, DAILY
     Route: 048
  7. PRISTIQ [Concomitant]
     Indication: DEPRESSION
     Dosage: 100 MG, DAILY
     Route: 048
  8. BENTYL [Concomitant]
     Indication: GASTROOESOPHAGEAL REFLUX DISEASE
     Dosage: 10 MG, DAILY
     Route: 048
  9. WELLBUTRIN [Concomitant]
     Indication: PRODUCT USED FOR UNKNOWN INDICATION
     Dosage: 100 MG, DAILY
     Route: 048
  10. PROBIOTICS NOS [Concomitant]
     Indication: PRODUCT USED FOR UNKNOWN INDICATION
     Dosage: UNK, DAILY
     Route: 048
  11. VITAMIN D NOS [Concomitant]
     Indication: PRODUCT USED FOR UNKNOWN INDICATION
     Dosage: UNK, DAILY
     Route: 065
  12. CALCIUM [Concomitant]
     Indication: PRODUCT USED FOR UNKNOWN INDICATION
     Dosage: UNK, DAILY
     Route: 065

REACTIONS (6)
  - Application site scar [Not Recovered/Not Resolved]
  - Application site burn [Not Recovered/Not Resolved]
  - Drug administered at inappropriate site [Unknown]
  - Application site pruritus [Not Recovered/Not Resolved]
  - Application site pustules [Not Recovered/Not Resolved]
  - Application site swelling [Not Recovered/Not Resolved]
